FAERS Safety Report 15707990 (Version 1)
Quarter: 2018Q4

REPORT INFORMATION
  Report Type: Report from Study
  Country: None (occurrence: CO)
  Receive Date: 20181211
  Receipt Date: 20181211
  Transmission Date: 20190205
  Serious: Yes (Hospitalization)
  Sender: FDA-Public Use
  Company Number: CO-ABBVIE-18K-036-2585846-00

PATIENT
  Age: 17 Year
  Sex: Male
  Weight: 59 kg

DRUGS (2)
  1. HUMIRA [Suspect]
     Active Substance: ADALIMUMAB
     Indication: JUVENILE IDIOPATHIC ARTHRITIS
     Route: 058
     Dates: start: 20180806
  2. HUMIRA [Suspect]
     Active Substance: ADALIMUMAB
     Indication: JUVENILE IDIOPATHIC ARTHRITIS
     Dosage: HUMIRA AC STARTED ON UNKNONW DATE
     Route: 058

REACTIONS (5)
  - Weight decreased [Recovering/Resolving]
  - Fatigue [Recovering/Resolving]
  - Decreased appetite [Recovering/Resolving]
  - Hyperhidrosis [Recovering/Resolving]
  - Helicobacter gastritis [Recovering/Resolving]

NARRATIVE: CASE EVENT DATE: 20181012
